FAERS Safety Report 21836523 (Version 1)
Quarter: 2023Q1

REPORT INFORMATION
  Report Type: Spontaneous
  Country: DE (occurrence: DE)
  Receive Date: 20230109
  Receipt Date: 20230109
  Transmission Date: 20230418
  Serious: No
  Sender: FDA-Public Use
  Company Number: DE-ALKEM LABORATORIES LIMITED-DE-ALKEM-2022-13550

PATIENT
  Sex: Male

DRUGS (4)
  1. IBUPROFEN [Suspect]
     Active Substance: IBUPROFEN
     Indication: Pain
     Dosage: UNK
     Route: 065
  2. ARCOXIA [Suspect]
     Active Substance: ETORICOXIB
     Indication: Pain
     Dosage: UNK
     Route: 065
  3. COSENTYX [Suspect]
     Active Substance: SECUKINUMAB
     Indication: Ankylosing spondylitis
     Dosage: 150 MILLIGRAMS, SOLUTION FOR INJECTION
     Route: 065
     Dates: start: 2016
  4. METAMIZOLE SODIUM [Suspect]
     Active Substance: METAMIZOLE SODIUM
     Indication: Pain
     Dosage: UNK
     Route: 065

REACTIONS (5)
  - Drug ineffective [Unknown]
  - Drug intolerance [Unknown]
  - Inappropriate schedule of product administration [Unknown]
  - Nausea [Unknown]
  - Vomiting [Unknown]
